FAERS Safety Report 11694543 (Version 1)
Quarter: 2015Q4

REPORT INFORMATION
  Report Type: Spontaneous
  Country: US (occurrence: US)
  Receive Date: 20151103
  Receipt Date: 20151103
  Transmission Date: 20160304
  Serious: Yes (Other)
  Sender: FDA-Public Use
  Company Number: US-ELI_LILLY_AND_COMPANY-US201510007564

PATIENT
  Age: 57 Year
  Sex: Female
  Weight: 50.34 kg

DRUGS (10)
  1. CISPLATIN. [Concomitant]
     Active Substance: CISPLATIN
     Dosage: UNK UNK, CYCLICAL
     Dates: start: 20141006, end: 20141208
  2. PROTONIX                           /00661201/ [Concomitant]
     Active Substance: OMEPRAZOLE
     Dosage: 40 MG, QD
     Dates: start: 20141006, end: 20141208
  3. ALIMTA [Suspect]
     Active Substance: PEMETREXED DISODIUM
     Indication: PRODUCT USED FOR UNKNOWN INDICATION
     Dosage: UNK, X 4
     Route: 065
     Dates: start: 20141006, end: 20141208
  4. IBRANCE [Concomitant]
     Active Substance: PALBOCICLIB
     Dosage: 125 MG, QD
  5. TYLENOL [Concomitant]
     Active Substance: ACETAMINOPHEN
     Dosage: 325 MG, PRN
  6. PROCHLORPERAZINE MALEATE. [Concomitant]
     Active Substance: PROCHLORPERAZINE MALEATE
     Dosage: 10 MG, PRN
  7. ALIMTA [Suspect]
     Active Substance: PEMETREXED DISODIUM
     Dosage: UNK, EVERY THREE WEEKS
     Route: 065
     Dates: start: 20141229
  8. PHENYTOIN. [Concomitant]
     Active Substance: PHENYTOIN
     Dosage: 100 MG, BID
     Route: 048
  9. ZOFRAN [Concomitant]
     Active Substance: ONDANSETRON HYDROCHLORIDE
     Dosage: 8 MG, PRN
  10. OXYCODONE [Concomitant]
     Active Substance: OXYCODONE
     Dosage: 5 MG, PRN
     Route: 048

REACTIONS (3)
  - Vomiting [Unknown]
  - Pancytopenia [Unknown]
  - Malignant neoplasm progression [Unknown]

NARRATIVE: CASE EVENT DATE: 201504
